FAERS Safety Report 15957933 (Version 9)
Quarter: 2021Q2

REPORT INFORMATION
  Report Type: Spontaneous
  Country: US (occurrence: US)
  Receive Date: 20190213
  Receipt Date: 20210407
  Transmission Date: 20210716
  Serious: Yes (Other)
  Sender: FDA-Public Use
  Company Number: US-PFIZER INC-2019057957

PATIENT
  Age: 80 Year
  Sex: Female
  Weight: 62 kg

DRUGS (6)
  1. IBRANCE [Suspect]
     Active Substance: PALBOCICLIB
     Indication: BREAST CANCER FEMALE
     Dosage: 125 MG, UNK
  2. AROMASIN [Suspect]
     Active Substance: EXEMESTANE
     Indication: BREAST CANCER METASTATIC
     Dosage: 25 MG, 1X/DAY (ONCE A DAY BY MOUTH EVERYDAY)
     Route: 048
     Dates: start: 2015
  3. FEMARA [Suspect]
     Active Substance: LETROZOLE
     Dosage: UNK
  4. IBRANCE [Suspect]
     Active Substance: PALBOCICLIB
     Dosage: 125 MG, UNK
  5. IBRANCE [Suspect]
     Active Substance: PALBOCICLIB
     Indication: BREAST CANCER METASTATIC
     Dosage: 125 MG, CYCLIC (ONCE A DAY BY MOUTH FOR 21 DAYS THEN OFF FOR 7 DAYS)
     Route: 048
     Dates: start: 201502, end: 20180731
  6. IBRANCE [Suspect]
     Active Substance: PALBOCICLIB
     Dosage: 75 MG

REACTIONS (11)
  - White blood cell count decreased [Unknown]
  - Fatigue [Unknown]
  - Skin exfoliation [Unknown]
  - Laryngitis [Unknown]
  - Chills [Unknown]
  - Dysphagia [Unknown]
  - Breast pain [Unknown]
  - Pneumonia [Unknown]
  - Speech disorder [Unknown]
  - Blood count abnormal [Unknown]
  - Haemorrhage [Unknown]

NARRATIVE: CASE EVENT DATE: 20180731
